FAERS Safety Report 7813826-9 (Version None)
Quarter: 2011Q4

REPORT INFORMATION
  Report Type: 
  Country: None (occurrence: None)
  Receive Date: 20111014
  Receipt Date: 20101029
  Transmission Date: 20120403
  Serious: No
  Sender: FDA-Public Use
  Company Number: HU-BAYER-201046999GPV

PATIENT
  Age: 35 Year
  Sex: Female

DRUGS (1)
  1. MIRENA [Suspect]
     Indication: CONTRACEPTION
     Dosage: 20 ?G (DAILY DOSE), CONT, INTRA-UTERINE
     Route: 015
     Dates: start: 20100528, end: 20100625

REACTIONS (7)
  - VERTIGO [None]
  - DEPRESSED MOOD [None]
  - ABDOMINAL PAIN LOWER [None]
  - PELVIC PAIN [None]
  - MOOD ALTERED [None]
  - DEVICE INTOLERANCE [None]
  - MALAISE [None]
